FAERS Safety Report 23391884 (Version 1)
Quarter: 2024Q1

REPORT INFORMATION
  Report Type: Other
  Country: US (occurrence: None)
  Receive Date: 20240111
  Receipt Date: 20240111
  Transmission Date: 20240410
  Serious: Yes (Other)
  Sender: FDA-Public Use
  Company Number: US-ROCHE-3488586

PATIENT
  Age: 30 Year
  Sex: Male

DRUGS (4)
  1. ALECTINIB [Suspect]
     Active Substance: ALECTINIB
     Indication: Lung adenocarcinoma
     Route: 065
  2. ALECTINIB [Suspect]
     Active Substance: ALECTINIB
     Route: 065
  3. ALECTINIB [Suspect]
     Active Substance: ALECTINIB
     Route: 065
  4. BRIGATINIB [Concomitant]
     Active Substance: BRIGATINIB
     Dosage: BRIGATINIB WAS INITIATED AT THE RECOMMENDED DOSE OF 90 MG DAILY FOLLOWED BY 180 MG DAILY

REACTIONS (1)
  - Chylothorax [Recovered/Resolved]
